FAERS Safety Report 13559120 (Version 1)
Quarter: 2017Q2

REPORT INFORMATION
  Report Type: Spontaneous
  Country: JP (occurrence: JP)
  Receive Date: 20170518
  Receipt Date: 20170518
  Transmission Date: 20170830
  Serious: Yes (Death, Other)
  Sender: FDA-Public Use
  Company Number: JP-LUPIN (EUROPE) LIMITED-2016-05279

PATIENT
  Age: 78 Year
  Sex: Female

DRUGS (2)
  1. QUETIAPINE FUMARATE. [Suspect]
     Active Substance: QUETIAPINE FUMARATE
     Indication: PRODUCT USED FOR UNKNOWN INDICATION
     Dosage: 1 DF,QD,
     Route: 065
     Dates: start: 201407, end: 201408
  2. SULPIRIDE [Suspect]
     Active Substance: SULPIRIDE
     Dosage: 1 DF,QD,
     Route: 065
     Dates: start: 201408, end: 201408

REACTIONS (1)
  - Neuroleptic malignant syndrome [Fatal]
